FAERS Safety Report 6193510-0 (Version None)
Quarter: 2009Q2

REPORT INFORMATION
  Report Type: 
  Country: None (occurrence: None)
  Receive Date: 20090518
  Receipt Date: 20090513
  Transmission Date: 20091009
  Serious: Yes (Hospitalization)
  Sender: FDA-Public Use
  Company Number: US-BIOGENIDEC-2009BI014429

PATIENT
  Age: 58 Year
  Sex: Female

DRUGS (18)
  1. TYSABRI [Suspect]
     Indication: MULTIPLE SCLEROSIS
     Route: 042
     Dates: start: 20080514
  2. ACTONEL [Concomitant]
  3. ALPRAZOLAM [Concomitant]
  4. AMITIZA [Concomitant]
  5. ASPIRIN [Concomitant]
  6. BACLOFEN [Concomitant]
  7. CALCIUM [Concomitant]
  8. CHANTIX [Concomitant]
  9. CYCLOBENZAPRINE [Concomitant]
  10. FUROSEMIDE [Concomitant]
  11. MULTI-VITAMIN [Concomitant]
  12. NITRO-BID [Concomitant]
  13. PLAVIX [Concomitant]
  14. POTASSIUM CHLORIDE [Concomitant]
  15. PREMARIN [Concomitant]
  16. PROTONIX [Concomitant]
  17. PROVIGIL [Concomitant]
  18. VITAMIN B COMPLEX CAP [Concomitant]

REACTIONS (1)
  - SYNCOPE [None]
